FAERS Safety Report 16230464 (Version 3)
Quarter: 2019Q2

REPORT INFORMATION
  Report Type: Spontaneous
  Country: DE (occurrence: DE)
  Receive Date: 20190423
  Receipt Date: 20190614
  Transmission Date: 20190711
  Serious: Yes (Hospitalization)
  Sender: FDA-Public Use
  Company Number: DE-EMD SERONO-9086713

PATIENT
  Age: 27 Year
  Sex: Female

DRUGS (2)
  1. MAVENCLAD [Suspect]
     Active Substance: CLADRIBINE
     Indication: RELAPSING-REMITTING MULTIPLE SCLEROSIS
     Dosage: FIRST WEEK THERAPY WITH 10 MG PER DAY FOR 5 DAYS (5 TABLETS IN TOTAL).
     Route: 048
     Dates: start: 20180912, end: 20180916
  2. MAVENCLAD [Suspect]
     Active Substance: CLADRIBINE
     Dosage: SECOND WEEK THERAPY WITH 10 MG PER DAY FOR 5 DAYS (5 TABLETS IN TOTAL).
     Route: 048
     Dates: start: 20181016, end: 20181020

REACTIONS (7)
  - Alanine aminotransferase increased [Recovered/Resolved]
  - Multiple sclerosis relapse [Recovering/Resolving]
  - Lymphocyte count decreased [Recovered/Resolved]
  - Aspartate aminotransferase increased [Recovering/Resolving]
  - Multiple sclerosis [Recovering/Resolving]
  - Blood creatine phosphokinase increased [Recovering/Resolving]
  - Blood bilirubin increased [Not Recovered/Not Resolved]

NARRATIVE: CASE EVENT DATE: 201903
